FAERS Safety Report 5391433-8 (Version None)
Quarter: 2007Q3

REPORT INFORMATION
  Report Type: 
  Country: None (occurrence: None)
  Receive Date: 20070719
  Receipt Date: 20070718
  Transmission Date: 20080115
  Serious: Yes (Other)
  Sender: FDA-Public Use
  Company Number: A0664563A

PATIENT
  Sex: Female

DRUGS (1)
  1. ALLI [Suspect]
     Indication: WEIGHT LOSS DIET
     Route: 065

REACTIONS (4)
  - BLINDNESS [None]
  - BLOOD PRESSURE DECREASED [None]
  - PRURITUS GENERALISED [None]
  - VERTIGO [None]
